FAERS Safety Report 8031435-6 (Version None)
Quarter: 2011Q4

REPORT INFORMATION
  Report Type: 
  Country: None (occurrence: None)
  Receive Date: 20111201
  Receipt Date: 20110825
  Transmission Date: 20120403
  Serious: Yes (Hospitalization)
  Sender: FDA-Public Use
  Company Number: 20110713CINRY2121

PATIENT
  Sex: Female

DRUGS (1)
  1. CINRYZE [Suspect]
     Indication: HEREDITARY ANGIOEDEMA
     Dosage: (1000 IU, 1 IN 1 D)
     Dates: start: 20110506, end: 20110506

REACTIONS (2)
  - HEREDITARY ANGIOEDEMA [None]
  - OFF LABEL USE [None]
